FAERS Safety Report 8534200-6 (Version None)
Quarter: 2012Q3

REPORT INFORMATION
  Report Type: 
  Country: None (occurrence: None)
  Receive Date: 20120724
  Receipt Date: 20120716
  Transmission Date: 20120928
  Serious: Yes (Death, Hospitalization, Other)
  Sender: FDA-Public Use
  Company Number: DE-ACTELION-A-CH2012-66509

PATIENT
  Sex: Female
  Weight: 58 kg

DRUGS (8)
  1. XIPAMIDE [Concomitant]
  2. TRACLEER [Suspect]
     Indication: PULMONARY HYPERTENSION
     Dosage: 125 MG, BID
     Route: 048
     Dates: end: 20120531
  3. TRACLEER [Suspect]
     Dosage: UNK , UNK
     Route: 048
     Dates: start: 20080501
  4. OXYGEN [Concomitant]
  5. REVATIO [Concomitant]
  6. SPIRIVA [Concomitant]
  7. TORSEMIDE [Concomitant]
  8. FLUTICASONE PROPIONATE/SALMETEROL [Concomitant]

REACTIONS (13)
  - GENERAL PHYSICAL HEALTH DETERIORATION [None]
  - FALL [None]
  - PULMONARY HYPERTENSION [None]
  - PLEURAL EFFUSION [None]
  - PERIORBITAL HAEMATOMA [None]
  - RESPIRATORY FAILURE [None]
  - SYNCOPE [None]
  - OEDEMA PERIPHERAL [None]
  - ASPIRATION PLEURAL CAVITY [None]
  - DYSPNOEA [None]
  - APNOEA [None]
  - CYANOSIS [None]
  - HEART RATE IRREGULAR [None]
